FAERS Safety Report 10404243 (Version 1)
Quarter: 2014Q1

REPORT INFORMATION
  Report Type: Spontaneous
  Country: US (occurrence: None)
  Receive Date: 20140131
  Receipt Date: 20140131
  Transmission Date: 20141002
  Serious: Yes (Other)
  Sender: FDA-Public Use
  Company Number: 056255

PATIENT
  Age: 34 Year
  Sex: Male
  Weight: 65.8 kg

DRUGS (1)
  1. KEPPRA [Suspect]
     Indication: CONVULSION
     Route: 048
     Dates: start: 20050413, end: 200705

REACTIONS (2)
  - Convulsion [None]
  - Medication error [None]
